FAERS Safety Report 7516606-7 (Version None)
Quarter: 2011Q2

REPORT INFORMATION
  Report Type: 
  Country: None (occurrence: None)
  Receive Date: 20110428
  Receipt Date: 20100601
  Transmission Date: 20111010
  Serious: Yes (Other)
  Sender: FDA-Public Use
  Company Number: THYM-1001529

PATIENT
  Age: 57 Year
  Sex: Female

DRUGS (7)
  1. THYMOGLOBULIN [Suspect]
     Indication: PROPHYLAXIS AGAINST TRANSPLANT REJECTION
     Dosage: 150 MG, QD, INTRAVENOUS
     Route: 042
     Dates: start: 20091127, end: 20091130
  2. MYFORTIC (MYCOPHENOLATE ACID) [Concomitant]
  3. PROGRAF [Concomitant]
  4. VALCYTE [Concomitant]
  5. THYMOGLOBULIN [Suspect]
  6. SOLU-MEDROL [Concomitant]
  7. BACTRIM [Concomitant]

REACTIONS (2)
  - KIDNEY TRANSPLANT REJECTION [None]
  - DRUG INEFFECTIVE [None]
